FAERS Safety Report 6014601-0 (Version None)
Quarter: 2008Q4

REPORT INFORMATION
  Report Type: 
  Country: None (occurrence: None)
  Receive Date: 20081219
  Receipt Date: 20080911
  Transmission Date: 20090506
  Serious: No
  Sender: FDA-Public Use
  Company Number: A0747067A

PATIENT
  Age: 58 Year
  Sex: Male

DRUGS (9)
  1. AVODART [Suspect]
     Indication: BENIGN PROSTATIC HYPERPLASIA
     Dosage: 1CAP PER DAY
     Route: 048
     Dates: start: 20060810, end: 20071201
  2. FEXOFENADINE [Concomitant]
  3. ZANAFLEX [Concomitant]
  4. METFORMIN HCL [Concomitant]
  5. LISINOPRIL [Concomitant]
  6. CEPHALEXIN [Concomitant]
  7. AMOXICILLIN [Concomitant]
  8. AUGMENTIN '125' [Concomitant]
  9. ZETIA [Concomitant]

REACTIONS (1)
  - PROSTATIC SPECIFIC ANTIGEN INCREASED [None]
